FAERS Safety Report 19803943 (Version 1)
Quarter: 2021Q3

REPORT INFORMATION
  Report Type: Spontaneous
  Country: US (occurrence: US)
  Receive Date: 20210908
  Receipt Date: 20210908
  Transmission Date: 20211014
  Serious: No
  Sender: FDA-Public Use
  Company Number: US-MANKINDUS-000010

PATIENT
  Sex: Female

DRUGS (1)
  1. RANOLAZINE 1000MG ER TABLET [Suspect]
     Active Substance: RANOLAZINE
     Indication: PRODUCT USED FOR UNKNOWN INDICATION
     Dosage: STRENGTH: 1000 MG

REACTIONS (1)
  - Product residue present [Unknown]
